FAERS Safety Report 20002621 (Version 1)
Quarter: 2021Q4

REPORT INFORMATION
  Report Type: Spontaneous
  Country: GB (occurrence: GB)
  Receive Date: 20211027
  Receipt Date: 20211027
  Transmission Date: 20220303
  Serious: Yes (Other)
  Sender: FDA-Public Use
  Company Number: None

PATIENT
  Age: 82 Year
  Sex: Male
  Weight: 76 kg

DRUGS (9)
  1. PROPRANOLOL [Suspect]
     Active Substance: PROPRANOLOL HYDROCHLORIDE
     Dosage: 80 MILLIGRAM DAILY;
     Dates: start: 20211004
  2. CARBOCYSTEINE [Concomitant]
     Active Substance: CARBOCYSTEINE
     Dosage: 4 DOSAGE FORMS DAILY;
     Dates: start: 20200804
  3. COCODAMOL [Concomitant]
     Active Substance: ACETAMINOPHEN\CODEINE PHOSPHATE
     Dosage: TAKE 1 OR 2 4 TIMES/DAY (CAUTION THIS IS A POTE...
     Dates: start: 20200206
  4. COSMOCOL [Concomitant]
     Dosage: TAKE UP TO TWO SACHETS TO BE TAKEN TWICE DAILY
     Dates: start: 20211004, end: 20211014
  5. PANTOPRAZOLE [Concomitant]
     Active Substance: PANTOPRAZOLE
     Dosage: 2 DOSAGE FORMS DAILY; (TO REDUCE STOMACH ACID)
     Dates: start: 20200206
  6. ACIDEX [Concomitant]
     Dosage: 40 ML DAILY;
     Dates: start: 20210803
  7. PRAVASTATIN [Concomitant]
     Active Substance: PRAVASTATIN
     Indication: Blood cholesterol
     Dosage: 1 DOSAGE FORMS DAILY; NIGHTLY.
     Dates: start: 20200206
  8. SODIUM BICARBONATE [Concomitant]
     Active Substance: SODIUM BICARBONATE
     Dosage: 15 GTT DAILY; BREAK MUCUS.
     Route: 001
     Dates: start: 20211004, end: 20211011
  9. BECLOMETHASONE DIPROPIONATE\FORMOTEROL FUMARATE\GLYCOPYRROLATE [Concomitant]
     Active Substance: BECLOMETHASONE DIPROPIONATE\FORMOTEROL FUMARATE\GLYCOPYRROLATE
     Dosage: 4 DOSAGE FORMS DAILY;
     Route: 055
     Dates: start: 20200804

REACTIONS (1)
  - Lip swelling [Unknown]

NARRATIVE: CASE EVENT DATE: 20211014
